FAERS Safety Report 4837275-0 (Version None)
Quarter: 2005Q4

REPORT INFORMATION
  Report Type: 
  Country: None (occurrence: None)
  Receive Date: 20051128
  Receipt Date: 20050711
  Transmission Date: 20060501
  Serious: Yes (Other)
  Sender: FDA-Public Use
  Company Number: 2005UW10654

PATIENT
  Age: 31631 Day
  Sex: Female
  Weight: 68.2 kg

DRUGS (14)
  1. PRILOSEC OTC [Suspect]
     Indication: REFLUX OESOPHAGITIS
     Route: 048
     Dates: start: 20050614, end: 20050614
  2. PRILOSEC OTC [Suspect]
     Indication: GASTROOESOPHAGEAL REFLUX DISEASE
     Route: 048
     Dates: start: 20050614, end: 20050614
  3. PRILOSEC OTC [Suspect]
     Route: 048
     Dates: start: 20050627, end: 20050627
  4. PRILOSEC OTC [Suspect]
     Route: 048
     Dates: start: 20050627, end: 20050627
  5. SPIRONOLACTONE [Concomitant]
  6. DILTIAZEM HCL [Concomitant]
  7. ENALAPRIL [Concomitant]
  8. DIGOXIN [Concomitant]
  9. ZOCOR [Concomitant]
  10. FUROSEMIDE [Concomitant]
     Route: 048
  11. LEVOTHYROXINE SODIUM [Concomitant]
  12. WARFARIN SODIUM [Concomitant]
     Route: 048
  13. CITALOPRAM [Concomitant]
  14. TRAZODONE [Concomitant]
     Route: 048

REACTIONS (10)
  - ANGIONEUROTIC OEDEMA [None]
  - ASPARTATE AMINOTRANSFERASE INCREASED [None]
  - ATRIAL FIBRILLATION [None]
  - BLOOD ALKALINE PHOSPHATASE INCREASED [None]
  - BLOOD CREATININE INCREASED [None]
  - BLOOD GLUCOSE INCREASED [None]
  - BLOOD UREA INCREASED [None]
  - EPIGLOTTITIS [None]
  - HYPERSENSITIVITY [None]
  - WHITE BLOOD CELL COUNT INCREASED [None]
